FAERS Safety Report 19677888 (Version 4)
Quarter: 2022Q1

REPORT INFORMATION
  Report Type: Report from Study
  Country: GT (occurrence: GT)
  Receive Date: 20210809
  Receipt Date: 20220209
  Transmission Date: 20220424
  Serious: Yes (Other)
  Sender: FDA-Public Use
  Company Number: NVSC2021GT174870

PATIENT
  Sex: Male

DRUGS (3)
  1. SECUKINUMAB [Suspect]
     Active Substance: SECUKINUMAB
     Indication: Ankylosing spondylitis
     Dosage: 150 MG, QMO (BENEATH THE SKIN, USUALLY VIA INJECTION )
     Route: 058
     Dates: start: 20201127
  2. SECUKINUMAB [Suspect]
     Active Substance: SECUKINUMAB
     Dosage: UNK
     Route: 058
     Dates: start: 20210621
  3. SECUKINUMAB [Suspect]
     Active Substance: SECUKINUMAB
     Dosage: 150 MG, QMO
     Route: 058

REACTIONS (11)
  - Seizure [Unknown]
  - Epilepsy [Unknown]
  - Cerebral disorder [Unknown]
  - Aggression [Unknown]
  - Pain [Not Recovered/Not Resolved]
  - Abdominal discomfort [Unknown]
  - Drug intolerance [Unknown]
  - Condition aggravated [Unknown]
  - Feeling abnormal [Unknown]
  - Cholelithiasis [Unknown]
  - Drug ineffective [Unknown]
